FAERS Safety Report 6465208-2 (Version None)
Quarter: 2009Q4

REPORT INFORMATION
  Report Type: 
  Country: None (occurrence: None)
  Receive Date: 20091201
  Receipt Date: 20091117
  Transmission Date: 20100525
  Serious: Yes (Hospitalization, Other)
  Sender: FDA-Public Use
  Company Number: MX-MYLANLABS-2009S1019882

PATIENT
  Age: 34 Year
  Sex: Female

DRUGS (3)
  1. THIAMAZOLE [Suspect]
     Indication: BASEDOW'S DISEASE
     Dosage: 15 MG/DAY
  2. PROPRANOLOL [Concomitant]
     Dosage: 20 MG/DAY
  3. PREDNISONE TAB [Concomitant]
     Dosage: 50 MG/DAY

REACTIONS (2)
  - AGRANULOCYTOSIS [None]
  - ZYGOMYCOSIS [None]
